FAERS Safety Report 21484359 (Version 5)
Quarter: 2023Q2

REPORT INFORMATION
  Report Type: Spontaneous
  Country: US (occurrence: US)
  Receive Date: 20221020
  Receipt Date: 20230418
  Transmission Date: 20230721
  Serious: Yes (Other)
  Sender: FDA-Public Use
  Company Number: US-UCBSA-2022052033

PATIENT
  Age: 18 Year
  Sex: Female
  Weight: 57.143 kg

DRUGS (4)
  1. FINTEPLA [Suspect]
     Active Substance: FENFLURAMINE
     Indication: Severe myoclonic epilepsy of infancy
     Dosage: 2.8 MILLILITER, 2X/DAY (BID)
     Dates: start: 20220802
  2. FINTEPLA [Suspect]
     Active Substance: FENFLURAMINE
     Dosage: 2.8 MILLILITER, 2X/DAY (BID)
  3. FINTEPLA [Suspect]
     Active Substance: FENFLURAMINE
     Dosage: 4 MILLILITER, 2X/DAY (BID)
  4. FINTEPLA [Suspect]
     Active Substance: FENFLURAMINE
     Dosage: 7 MILLILITER, 2X/DAY (BID)

REACTIONS (7)
  - Seizure [Not Recovered/Not Resolved]
  - Diarrhoea [Unknown]
  - Decreased appetite [Unknown]
  - Weight decreased [Not Recovered/Not Resolved]
  - Drug ineffective [Unknown]
  - Product dose omission issue [Unknown]
  - Off label use [Unknown]

NARRATIVE: CASE EVENT DATE: 20220822
